FAERS Safety Report 4397842-8 (Version None)
Quarter: 2004Q2

REPORT INFORMATION
  Report Type: 
  Country: None (occurrence: None)
  Receive Date: 20040621
  Receipt Date: 20040329
  Transmission Date: 20050107
  Serious: Yes (Hospitalization)
  Sender: FDA-Public Use
  Company Number: USA-2004-0014193

PATIENT
  Age: 48 Year
  Sex: Male

DRUGS (3)
  1. OXYCONTIN [Suspect]
     Dosage: MG
  2. XANAX [Suspect]
  3. FLEXERIL [Concomitant]

REACTIONS (1)
  - MULTIPLE DRUG OVERDOSE [None]
